FAERS Safety Report 7281951-X (Version None)
Quarter: 2011Q1

REPORT INFORMATION
  Report Type: 
  Country: None (occurrence: None)
  Receive Date: 20110208
  Receipt Date: 20110126
  Transmission Date: 20110831
  Serious: Yes (Hospitalization)
  Sender: FDA-Public Use
  Company Number: US-ELI_LILLY_AND_COMPANY-US201101007151

PATIENT
  Sex: Female

DRUGS (5)
  1. OXYCODONE HCL [Concomitant]
     Dosage: UNK, AS NEEDED
     Route: 065
  2. AMPICILLIN [Concomitant]
     Dosage: UNK, UNKNOWN
     Route: 065
  3. FORTEO [Suspect]
     Indication: OSTEOPOROSIS
     Dosage: 20 UG, DAILY (1/D)
     Route: 065
     Dates: start: 20110110
  4. OXYCONTIN [Concomitant]
     Dosage: UNK, UNKNOWN
     Route: 065
  5. CYMBALTA [Concomitant]
     Dosage: UNK, UNKNOWN
     Route: 065

REACTIONS (5)
  - MOBILITY DECREASED [None]
  - ACCIDENTAL OVERDOSE [None]
  - BACK PAIN [None]
  - INFECTION [None]
  - PAIN IN EXTREMITY [None]
